FAERS Safety Report 17388365 (Version 7)
Quarter: 2020Q2

REPORT INFORMATION
  Report Type: Spontaneous
  Country: US (occurrence: US)
  Receive Date: 20200206
  Receipt Date: 20200625
  Transmission Date: 20200713
  Serious: Yes (Other)
  Sender: FDA-Public Use
  Company Number: US-ACTELION-A-US2020-201058

PATIENT
  Age: 77 Year
  Sex: Male
  Weight: 83.9 kg

DRUGS (8)
  1. OXYGEN. [Concomitant]
     Active Substance: OXYGEN
     Dosage: 8 LPM
  2. OXYGEN. [Concomitant]
     Active Substance: OXYGEN
     Dosage: 6 L
  3. UPTRAVI [Suspect]
     Active Substance: SELEXIPAG
     Dosage: 1200 MCG, BID
     Route: 048
  4. OXYGEN. [Concomitant]
     Active Substance: OXYGEN
     Dosage: 9 L
     Route: 045
  5. OFEV [Concomitant]
     Active Substance: NINTEDANIB
  6. UPTRAVI [Suspect]
     Active Substance: SELEXIPAG
     Dosage: 1200 MCG, BID
     Route: 048
     Dates: start: 20200206
  7. UPTRAVI [Suspect]
     Active Substance: SELEXIPAG
     Dosage: 1000 MCG, BID
     Route: 048
  8. UPTRAVI [Suspect]
     Active Substance: SELEXIPAG
     Indication: PULMONARY ARTERIAL HYPERTENSION
     Dosage: 1600 MCG, BID
     Route: 048

REACTIONS (31)
  - Deafness unilateral [Recovering/Resolving]
  - Feeling abnormal [Unknown]
  - Tremor [Unknown]
  - Oedema peripheral [Unknown]
  - Nasopharyngitis [Recovering/Resolving]
  - Dyspnoea [Unknown]
  - Heart rate increased [Unknown]
  - Dyspnoea exertional [Unknown]
  - Interstitial lung disease [Unknown]
  - Oxygen consumption increased [Unknown]
  - Mobility decreased [Unknown]
  - Spinal operation [Unknown]
  - Malaise [Unknown]
  - Chills [Unknown]
  - Peripheral swelling [Unknown]
  - Ear congestion [Unknown]
  - Blood pressure increased [Unknown]
  - Ear infection [Unknown]
  - Head discomfort [Unknown]
  - Diarrhoea [Unknown]
  - Therapy non-responder [Recovering/Resolving]
  - Peripheral coldness [Unknown]
  - Fall [Unknown]
  - Arthralgia [Unknown]
  - Oxygen saturation decreased [Unknown]
  - Respiratory tract congestion [Unknown]
  - Exercise tolerance decreased [Unknown]
  - Myalgia [Unknown]
  - Back pain [Unknown]
  - Pain [Unknown]
  - Ligament sprain [Unknown]

NARRATIVE: CASE EVENT DATE: 20200608
